FAERS Safety Report 19209289 (Version 2)
Quarter: 2021Q2

REPORT INFORMATION
  Report Type: Spontaneous
  Country: DE (occurrence: DE)
  Receive Date: 20210504
  Receipt Date: 20210513
  Transmission Date: 20210717
  Serious: Yes (Other)
  Sender: FDA-Public Use
  Company Number: DE-KYOWAKIRIN-2021BKK007237

PATIENT

DRUGS (1)
  1. CRYSVITA [Suspect]
     Active Substance: BUROSUMAB-TWZA
     Indication: HEREDITARY HYPOPHOSPHATAEMIC RICKETS
     Dosage: 20 MG, 1X/2 WEEKS
     Route: 065
     Dates: start: 20180912, end: 20210426

REACTIONS (1)
  - Dental fistula [Unknown]

NARRATIVE: CASE EVENT DATE: 202103
